FAERS Safety Report 4730015-5 (Version None)
Quarter: 2005Q3

REPORT INFORMATION
  Report Type: 
  Country: None (occurrence: None)
  Receive Date: 20050801
  Receipt Date: 20050727
  Transmission Date: 20060218
  Serious: Yes (Death, Hospitalization)
  Sender: FDA-Public Use
  Company Number: 2005CG01315

PATIENT
  Age: 62 Year
  Sex: Male
  Weight: 120 kg

DRUGS (6)
  1. OMEPRAZOLE [Suspect]
     Indication: GASTRIC ULCER
     Route: 048
  2. DOLIPRANE [Suspect]
     Indication: MYALGIA
     Route: 048
     Dates: start: 20040416, end: 20040417
  3. TRANDATE [Suspect]
     Indication: ESSENTIAL HYPERTENSION
     Route: 048
     Dates: end: 20040416
  4. CREON [Suspect]
     Indication: PANCREATIC DISORDER
     Route: 048
  5. AMAREL [Suspect]
     Indication: DIABETES MELLITUS
     Route: 048
     Dates: end: 20040416
  6. UPFEN [Suspect]
     Indication: MYALGIA
     Route: 048
     Dates: start: 20040416, end: 20040417

REACTIONS (13)
  - ANURIA [None]
  - ASTHENIA [None]
  - CONDITION AGGRAVATED [None]
  - DEPRESSED LEVEL OF CONSCIOUSNESS [None]
  - ERYSIPELAS [None]
  - HAEMODIALYSIS [None]
  - HYPOGLYCAEMIA [None]
  - MULTI-ORGAN FAILURE [None]
  - MYALGIA [None]
  - NECROTISING FASCIITIS STREPTOCOCCAL [None]
  - RESPIRATORY DISTRESS [None]
  - SEPTIC SHOCK [None]
  - THROMBOCYTOPENIA [None]
